FAERS Safety Report 8957245 (Version 1)
Quarter: 2012Q4

REPORT INFORMATION
  Report Type: Spontaneous
  Country: DK (occurrence: None)
  Receive Date: 20121130
  Receipt Date: 20121130
  Transmission Date: 20130627
  Serious: Yes (Other)
  Sender: FDA-Public Use
  Company Number: 2012MA013628

PATIENT
  Age: 60 Year
  Sex: Female

DRUGS (10)
  1. METFORMIN HYDROCHLORIDE [Suspect]
  2. BYETTA [Suspect]
     Indication: TYPE II DIABETES MELLITUS
     Route: 058
  3. BYETTA [Suspect]
     Indication: TYPE II DIABETES MELLITUS
     Route: 058
     Dates: end: 20121108
  4. FUROSEMIDE [Concomitant]
  5. INSULIN GLARGINE [Concomitant]
  6. SPIRONOLACTONE [Concomitant]
  7. ACETYLSALICYLIC ACID [Concomitant]
  8. BISOPRODOLOL [Concomitant]
  9. CANDESARTAN [Concomitant]
  10. OMEPRAZOLE [Concomitant]

REACTIONS (4)
  - Drug effect decreased [None]
  - Nausea [None]
  - Renal failure acute [None]
  - Hyperglycaemia [None]
